FAERS Safety Report 5300670-X (Version None)
Quarter: 2007Q2

REPORT INFORMATION
  Report Type: 
  Country: None (occurrence: None)
  Receive Date: 20070418
  Receipt Date: 20060925
  Transmission Date: 20071010
  Serious: Yes (Life-Threatening, Hospitalization)
  Sender: FDA-Public Use
  Company Number: CZ-JNJFOC-20060906068

PATIENT
  Age: 33 Year
  Sex: Female

DRUGS (3)
  1. ITRACONAZOLE [Suspect]
     Indication: MUCOSAL INFLAMMATION
     Route: 065
  2. TERFENADINE [Suspect]
     Indication: DERMATITIS ALLERGIC
     Route: 065
  3. ANTHRACYCLINE CYTOSTATICS [Concomitant]
     Indication: HODGKIN'S DISEASE
     Route: 065

REACTIONS (3)
  - ELECTROCARDIOGRAM QT PROLONGED [None]
  - TORSADE DE POINTES [None]
  - VENTRICULAR FIBRILLATION [None]
